FAERS Safety Report 9051561 (Version 2)
Quarter: 2013Q2

REPORT INFORMATION
  Report Type: Spontaneous
  Country: US (occurrence: US)
  Receive Date: 20130207
  Receipt Date: 20130613
  Transmission Date: 20140414
  Serious: Yes (Hospitalization)
  Sender: FDA-Public Use
  Company Number: US-BIOGENIDEC-2013BI011586

PATIENT
  Age: 65 Year
  Sex: Female

DRUGS (6)
  1. TYSABRI [Suspect]
     Indication: MULTIPLE SCLEROSIS
     Route: 042
     Dates: start: 20121121
  2. ECOTRIN [Concomitant]
     Route: 048
  3. LISINOPRIL-HYDROCHLOROTHIAZIDE [Concomitant]
     Route: 048
  4. BENTYL [Concomitant]
     Route: 048
  5. PROTONIX [Concomitant]
     Route: 048
  6. CALAN [Concomitant]
     Route: 048

REACTIONS (2)
  - Neuromyelitis optica [Not Recovered/Not Resolved]
  - Dysgraphia [Not Recovered/Not Resolved]
